FAERS Safety Report 24387633 (Version 2)
Quarter: 2024Q4

REPORT INFORMATION
  Report Type: Spontaneous
  Country: US (occurrence: US)
  Receive Date: 20241002
  Receipt Date: 20241209
  Transmission Date: 20250114
  Serious: No
  Sender: SANOFI AVENTIS
  Company Number: US-SA-2024SA282292

PATIENT
  Sex: Female

DRUGS (12)
  1. DUPIXENT [Suspect]
     Active Substance: DUPILUMAB
     Indication: Asthma
     Dosage: 300 MG, QOW
     Route: 058
     Dates: start: 20230121
  2. DUPIXENT [Suspect]
     Active Substance: DUPILUMAB
     Dosage: 300 MG, QOW
     Route: 058
  3. ALBUTEROL [Concomitant]
     Active Substance: ALBUTEROL
     Dosage: UNK
  4. BUPROPION [Concomitant]
     Active Substance: BUPROPION
     Dosage: UNK
  5. DULERA [Concomitant]
     Active Substance: FORMOTEROL FUMARATE DIHYDRATE\MOMETASONE FUROATE
     Dosage: UNK
  6. MAGNESIUM [Concomitant]
     Active Substance: MAGNESIUM
  7. VITAMINS [Concomitant]
     Active Substance: VITAMINS
  8. SUMATRIPTAN [Concomitant]
     Active Substance: SUMATRIPTAN
  9. TOPAMAX [Concomitant]
     Active Substance: TOPIRAMATE
  10. ZYRTEC [Concomitant]
     Active Substance: CETIRIZINE HYDROCHLORIDE
  11. PROBIOTICS NOS [Concomitant]
     Active Substance: PROBIOTICS NOS
  12. ZINC [Concomitant]
     Active Substance: ZINC

REACTIONS (8)
  - Discomfort [Recovered/Resolved]
  - Impaired quality of life [Recovered/Resolved]
  - Infection [Recovered/Resolved]
  - Fatigue [Unknown]
  - Sleep disorder due to a general medical condition [Unknown]
  - Asthma [Unknown]
  - Therapeutic response decreased [Unknown]
  - Product dose omission in error [Unknown]
